FAERS Safety Report 9448614 (Version 1)
Quarter: 2013Q3

REPORT INFORMATION
  Report Type: Report from Study
  Country: US (occurrence: US)
  Receive Date: 20130808
  Receipt Date: 20130808
  Transmission Date: 20140515
  Serious: Yes (Hospitalization, Disabling, Other)
  Sender: FDA-Public Use
  Company Number: PHHO2013US010108

PATIENT
  Age: 66 Year
  Sex: Female
  Weight: 141 kg

DRUGS (4)
  1. PREDNISONE [Suspect]
  2. BLINDED ACZ885 [Suspect]
     Indication: CARDIOVASCULAR EVENT PROPHYLAXIS
     Dosage: CODE NOT BROKEN
     Route: 058
  3. BLINDED NO TREATMENT RECEIVED [Suspect]
     Indication: CARDIOVASCULAR EVENT PROPHYLAXIS
     Dosage: CODE NOT BROKEN
     Route: 058
  4. BLINDED PLACEBO [Suspect]
     Indication: CARDIOVASCULAR EVENT PROPHYLAXIS
     Dosage: CODE NOT BROKEN
     Route: 058

REACTIONS (1)
  - Urinary tract infection [Unknown]
